FAERS Safety Report 4369609-8 (Version None)
Quarter: 2004Q2

REPORT INFORMATION
  Report Type: 
  Country: None (occurrence: None)
  Receive Date: 20040526
  Receipt Date: 20040212
  Transmission Date: 20050107
  Serious: Yes (Hospitalization, Other)
  Sender: FDA-Public Use
  Company Number: USA040259188

PATIENT
  Age: 34 Year
  Sex: Female

DRUGS (11)
  1. ZYPREXA [Suspect]
     Indication: BIPOLAR DISORDER
  2. KLONOPIN [Concomitant]
  3. DEPAKOTE [Concomitant]
  4. MOTRIN [Concomitant]
  5. CELEBREX [Concomitant]
  6. RISPERDAL [Concomitant]
  7. LITHIUM CARBONATE [Concomitant]
  8. CLOZARIL [Concomitant]
  9. TRILEPTAL [Concomitant]
  10. TEGRETOL [Concomitant]
  11. ATIVAN [Concomitant]

REACTIONS (5)
  - BIPOLAR DISORDER [None]
  - DIFFICULTY IN WALKING [None]
  - OEDEMA PERIPHERAL [None]
  - PAIN IN EXTREMITY [None]
  - WEIGHT INCREASED [None]
